FAERS Safety Report 10094895 (Version 1)
Quarter: 2014Q2

REPORT INFORMATION
  Report Type: Spontaneous
  Country: US (occurrence: US)
  Receive Date: 20140422
  Receipt Date: 20140422
  Transmission Date: 20141212
  Serious: No
  Sender: FDA-Public Use
  Company Number: US-BAUSCH-BL-2014-001349

PATIENT
  Age: 90 Year
  Sex: Female

DRUGS (1)
  1. PROLENSA (BROMFENAC OPHTHALMIC SOLUTION) 0.07% [Suspect]
     Indication: CATARACT OPERATION
     Dosage: 1 DROP IN AFFECTED EYE ONCE DAILY
     Route: 061
     Dates: start: 20140304

REACTIONS (2)
  - Eye irritation [Recovered/Resolved]
  - Inappropriate schedule of drug administration [Recovered/Resolved]
